FAERS Safety Report 4573558-X (Version None)
Quarter: 2005Q1

REPORT INFORMATION
  Report Type: 
  Country: None (occurrence: None)
  Receive Date: 20050208
  Receipt Date: 20040916
  Transmission Date: 20050727
  Serious: No
  Sender: FDA-Public Use
  Company Number: US-GLAXOSMITHKLINE-A0526029A

PATIENT
  Age: 40 Year
  Sex: Male

DRUGS (1)
  1. PAXIL [Suspect]
     Indication: DEPRESSION
     Dosage: 60MG IN THE MORNING
     Route: 048
     Dates: start: 19990101, end: 20030901

REACTIONS (2)
  - FATIGUE [None]
  - INSOMNIA [None]
